FAERS Safety Report 4899766-6 (Version None)
Quarter: 2006Q1

REPORT INFORMATION
  Report Type: 
  Country: None (occurrence: None)
  Receive Date: 20060131
  Receipt Date: 20060117
  Transmission Date: 20060701
  Serious: Yes (Death, Other)
  Sender: FDA-Public Use
  Company Number: US-2006-000997

PATIENT
  Age: 6 Year
  Sex: Female

DRUGS (8)
  1. FLUDARA [Suspect]
     Indication: ACUTE MYELOID LEUKAEMIA
  2. BUSULFAN (BUSULFAN) [Suspect]
     Indication: ACUTE MYELOID LEUKAEMIA
  3. IDARUBICIN HCL [Suspect]
     Indication: ACUTE MYELOID LEUKAEMIA
  4. CYTARABINE [Suspect]
     Indication: ACUTE MYELOID LEUKAEMIA
  5. THIOGUANINE [Suspect]
     Indication: ACUTE MYELOID LEUKAEMIA
  6. ETOPOSIDE [Suspect]
  7. METHOTREXATE [Suspect]
  8. CYCLOPHOSPHAMIDE [Suspect]
     Indication: ACUTE MYELOID LEUKAEMIA

REACTIONS (5)
  - ABDOMINAL PAIN [None]
  - BONE MARROW TRANSPLANT [None]
  - FOCAL NODULAR HYPERPLASIA [None]
  - OBLITERATIVE BRONCHIOLITIS [None]
  - WEIGHT DECREASED [None]
